FAERS Safety Report 6984992-2 (Version None)
Quarter: 2010Q3

REPORT INFORMATION
  Report Type: 
  Country: None (occurrence: None)
  Receive Date: 20100915
  Receipt Date: 20100827
  Transmission Date: 20110219
  Serious: Yes (Other)
  Sender: FDA-Public Use
  Company Number: PHHY2010US57490

PATIENT
  Sex: Female

DRUGS (1)
  1. RECLAST [Suspect]
     Dosage: 5 MG
     Route: 042

REACTIONS (4)
  - CEREBROVASCULAR ACCIDENT [None]
  - MALAISE [None]
  - PANCREATIC ENZYMES INCREASED [None]
  - WEIGHT DECREASED [None]
